FAERS Safety Report 7357258-9 (Version None)
Quarter: 2011Q1

REPORT INFORMATION
  Report Type: 
  Country: None (occurrence: None)
  Receive Date: 20110311
  Receipt Date: 20110311
  Transmission Date: 20110831
  Serious: Yes (Disabling)
  Sender: FDA-Public Use
  Company Number: None

PATIENT
  Sex: Female

DRUGS (1)
  1. OMNISCAN [Suspect]
     Indication: ARTERIOGRAM CAROTID
     Dosage: 35CC UNK INTRAVENOUSLY
     Route: 042
     Dates: start: 20070208

REACTIONS (1)
  - NO ADVERSE EVENT [None]
